FAERS Safety Report 24107231 (Version 1)
Quarter: 2024Q3

REPORT INFORMATION
  Report Type: Spontaneous
  Country: US (occurrence: US)
  Receive Date: 20240718
  Receipt Date: 20240718
  Transmission Date: 20241017
  Serious: Yes (Life-Threatening, Hospitalization)
  Sender: STRIDES
  Company Number: US-STRIDES ARCOLAB LIMITED-2024SP008607

PATIENT
  Age: 26 Year
  Sex: Male

DRUGS (1)
  1. OXYCODONE [Suspect]
     Active Substance: OXYCODONE
     Indication: Product used for unknown indication
     Dosage: UNK (INGESTED 40-50 TABLETS)
     Route: 048

REACTIONS (11)
  - Respiratory failure [Recovered/Resolved]
  - Rhabdomyolysis [Recovered/Resolved]
  - Respiratory acidosis [Recovered/Resolved]
  - Acute kidney injury [Unknown]
  - Pneumonia aspiration [Recovered/Resolved]
  - Toxic leukoencephalopathy [Recovered/Resolved]
  - Brain injury [Recovered/Resolved]
  - Quadriplegia [Recovered/Resolved]
  - Cardio-respiratory arrest [Recovered/Resolved]
  - Intentional overdose [Unknown]
  - Toxicity to various agents [Unknown]
